FAERS Safety Report 13894301 (Version 1)
Quarter: 2017Q3

REPORT INFORMATION
  Report Type: Spontaneous
  Country: IE (occurrence: IE)
  Receive Date: 20170822
  Receipt Date: 20170822
  Transmission Date: 20171127
  Serious: Yes (Death)
  Sender: FDA-Public Use
  Company Number: IE-MYLANLABS-2017M1051734

PATIENT

DRUGS (1)
  1. CLOZARIL [Suspect]
     Active Substance: CLOZAPINE
     Indication: SCHIZOPHRENIA
     Dosage: UNK
     Route: 048
     Dates: start: 20010701

REACTIONS (3)
  - Metastases to central nervous system [Fatal]
  - Lung neoplasm malignant [Fatal]
  - Metastases to bone [Fatal]
